FAERS Safety Report 6251377-6 (Version None)
Quarter: 2009Q2

REPORT INFORMATION
  Report Type: 
  Country: None (occurrence: None)
  Receive Date: 20090630
  Receipt Date: 20090623
  Transmission Date: 20091009
  Serious: Yes (Life-Threatening)
  Sender: FDA-Public Use
  Company Number: B0580198A

PATIENT
  Sex: Male

DRUGS (6)
  1. AUGMENTIN '125' [Suspect]
     Dosage: 1G THREE TIMES PER DAY
     Route: 048
     Dates: start: 20090416, end: 20090425
  2. ROCEPHIN [Suspect]
     Dosage: 1G PER DAY
     Route: 042
     Dates: start: 20090425, end: 20090512
  3. ROVAMYCINE [Suspect]
     Dosage: 1500000IU THREE TIMES PER DAY
     Route: 042
     Dates: start: 20090425, end: 20090512
  4. FLAGYL [Suspect]
     Dosage: 500MG THREE TIMES PER DAY
     Route: 048
     Dates: start: 20090505, end: 20090512
  5. MEMANTINE [Concomitant]
     Indication: VASCULAR DEMENTIA
     Route: 065
  6. DIURETIC [Concomitant]
     Route: 065

REACTIONS (5)
  - BLISTER [None]
  - DERMATITIS EXFOLIATIVE [None]
  - SKIN DISORDER [None]
  - SKIN EROSION [None]
  - STEVENS-JOHNSON SYNDROME [None]
